FAERS Safety Report 10361942 (Version 1)
Quarter: 2014Q1

REPORT INFORMATION
  Report Type: Spontaneous
  Country: US (occurrence: None)
  Receive Date: 20140306
  Receipt Date: 20140306
  Transmission Date: 20141002
  Serious: Yes (Other)
  Sender: FDA-Public Use
  Company Number: 163-21880-13073691

PATIENT
  Age: 84 Year
  Sex: Female
  Weight: 63.5 kg

DRUGS (6)
  1. REVLIMID [Suspect]
     Indication: PLASMA CELL MYELOMA
     Route: 048
     Dates: start: 201011
  2. EFFERVESCENT POTASSIUM (POTASSIUM CHLORIDE) [Concomitant]
  3. NEXIUM (ESOMEPRAZOLE) [Concomitant]
  4. COSOPT (COSOPT) [Concomitant]
  5. CARVEDILOL (CARVEDILOL) [Concomitant]
  6. LEVOXYL (LEVOTHYROXINE SODIUM) [Concomitant]

REACTIONS (1)
  - Thrombosis [None]
